FAERS Safety Report 16364228 (Version 1)
Quarter: 2019Q2

REPORT INFORMATION
  Report Type: Report from Study
  Country: US (occurrence: US)
  Receive Date: 20190528
  Receipt Date: 20190528
  Transmission Date: 20190711
  Serious: Yes (Hospitalization)
  Sender: FDA-Public Use
  Company Number: US-ACTELION-A-NJ2019-189794

PATIENT
  Age: 12 Year
  Sex: Female

DRUGS (1)
  1. TRACLEER [Suspect]
     Active Substance: BOSENTAN
     Indication: PULMONARY ARTERIAL HYPERTENSION
     Dosage: 62.5 MG, BID
     Route: 048
     Dates: start: 20190412

REACTIONS (4)
  - Diarrhoea [Unknown]
  - Nausea [Unknown]
  - Hospitalisation [Unknown]
  - Application site irritation [Unknown]

NARRATIVE: CASE EVENT DATE: 201904
